FAERS Safety Report 8030330-6 (Version None)
Quarter: 2012Q1

REPORT INFORMATION
  Report Type: 
  Country: None (occurrence: None)
  Receive Date: 20120109
  Receipt Date: 20120104
  Transmission Date: 20120608
  Serious: Yes (Hospitalization)
  Sender: FDA-Public Use
  Company Number: PHHY2011CA38467

PATIENT
  Sex: Female

DRUGS (8)
  1. AGRYLIN [Concomitant]
     Dosage: 0.5 MG, QD
     Route: 048
  2. BLOOD TRANSFUSION, AUXILIARY PRODUCTS [Concomitant]
     Dosage: 2 U EVERY 2 WEEKS
  3. ALLOPURINOL [Concomitant]
     Dosage: 300 MG, QD
     Route: 048
  4. CHEMOTHERAPEUTICS NOS [Concomitant]
  5. URSO 250 [Concomitant]
     Dosage: 250 MG, QD
     Route: 048
  6. EXJADE [Suspect]
     Indication: MYELODYSPLASTIC SYNDROME
     Dosage: 1250 MG, QD
     Route: 048
     Dates: start: 20101224
  7. HYDREA [Concomitant]
     Dosage: 1500 MG, QD
     Route: 048
  8. VITAMIN TAB [Concomitant]

REACTIONS (5)
  - FALL [None]
  - URINARY TRACT INFECTION [None]
  - FEELING ABNORMAL [None]
  - JOINT SWELLING [None]
  - PYREXIA [None]
